FAERS Safety Report 6145153-2 (Version None)
Quarter: 2009Q2

REPORT INFORMATION
  Report Type: 
  Country: None (occurrence: None)
  Receive Date: 20090406
  Receipt Date: 20090326
  Transmission Date: 20091009
  Serious: Yes (Hospitalization)
  Sender: FDA-Public Use
  Company Number: JP-ELI_LILLY_AND_COMPANY-JP200903004304

PATIENT
  Age: 64 Year
  Sex: Male
  Weight: 54 kg

DRUGS (1)
  1. HUMAN INSULIN (RDNA) UNK MANU [Suspect]
     Indication: DIABETES MELLITUS
     Dosage: UNK, 2/D
     Route: 058

REACTIONS (2)
  - HEMIPLEGIA [None]
  - HYPOGLYCAEMIC UNCONSCIOUSNESS [None]
